FAERS Safety Report 13351343 (Version 7)
Quarter: 2018Q2

REPORT INFORMATION
  Report Type: Report from Study
  Country: BR (occurrence: BR)
  Receive Date: 20170320
  Receipt Date: 20180509
  Transmission Date: 20180711
  Serious: Yes (Life-Threatening, Hospitalization, Other)
  Sender: FDA-Public Use
  Company Number: PHHY2017BR019147

PATIENT
  Age: 32 Year
  Sex: Female
  Weight: 56 kg

DRUGS (5)
  1. ILARIS [Suspect]
     Active Substance: CANAKINUMAB
     Indication: CRYOPYRIN ASSOCIATED PERIODIC SYNDROME
     Dosage: 150 MG, QMO
     Route: 058
     Dates: start: 201612
  2. ILARIS [Suspect]
     Active Substance: CANAKINUMAB
     Indication: POLYARTHRITIS
  3. ILARIS [Suspect]
     Active Substance: CANAKINUMAB
     Indication: JOINT SWELLING
  4. ILARIS [Suspect]
     Active Substance: CANAKINUMAB
     Indication: FAMILIAL COLD AUTOINFLAMMATORY SYNDROME
  5. FLUOXETINE [Concomitant]
     Active Substance: FLUOXETINE HYDROCHLORIDE
     Indication: MIGRAINE
     Dosage: 20 MG, QD
     Route: 065

REACTIONS (24)
  - Peripheral swelling [Unknown]
  - Malaise [Unknown]
  - Memory impairment [Unknown]
  - Paraesthesia [Unknown]
  - Urinary tract infection [Recovering/Resolving]
  - Cutaneous vasculitis [Unknown]
  - Skin discolouration [Not Recovered/Not Resolved]
  - Foot deformity [Unknown]
  - Pain in extremity [Unknown]
  - Phlebitis [Not Recovered/Not Resolved]
  - Pain [Not Recovered/Not Resolved]
  - Decreased immune responsiveness [Unknown]
  - Nasopharyngitis [Unknown]
  - Knee deformity [Unknown]
  - Erythema [Unknown]
  - Sensitivity to weather change [Unknown]
  - Apparent death [Unknown]
  - Movement disorder [Unknown]
  - Energy increased [Unknown]
  - Hand deformity [Unknown]
  - Arthralgia [Not Recovered/Not Resolved]
  - Joint swelling [Not Recovered/Not Resolved]
  - Pyrexia [Unknown]
  - Rhinorrhoea [Unknown]

NARRATIVE: CASE EVENT DATE: 20170201
